FAERS Safety Report 4564208-7 (Version None)
Quarter: 2005Q1

REPORT INFORMATION
  Report Type: 
  Country: None (occurrence: None)
  Receive Date: 20050126
  Receipt Date: 20050120
  Transmission Date: 20050727
  Serious: Yes (Hospitalization)
  Sender: FDA-Public Use
  Company Number: 211976

PATIENT
  Age: 57 Year
  Sex: Female

DRUGS (3)
  1. RAPTIVA [Suspect]
     Indication: PSORIASIS
     Dosage: 50 MG, 1/WEEK, SUBCUTANEOUS
     Route: 058
     Dates: start: 20041127, end: 20041211
  2. MYCOPHENOLATE MOFETIL           (MYCOPHENLOATE MOFETIL) [Concomitant]
  3. ACITRETIN (ACITRETIN) [Concomitant]

REACTIONS (10)
  - CONDITION AGGRAVATED [None]
  - COUGH [None]
  - HEADACHE [None]
  - HERPES ZOSTER [None]
  - MALAISE [None]
  - MEDICATION ERROR [None]
  - PHARYNGOLARYNGEAL PAIN [None]
  - PSORIASIS [None]
  - PYREXIA [None]
  - RALES [None]
